FAERS Safety Report 17659145 (Version 1)
Quarter: 2020Q2

REPORT INFORMATION
  Report Type: Report from Study
  Country: None (occurrence: US)
  Receive Date: 20200413
  Receipt Date: 20200413
  Transmission Date: 20200713
  Serious: Yes (Hospitalization, Other)
  Sender: FDA-Public Use
  Company Number: US-ABBVIE-19K-163-3148622-00

PATIENT
  Age: 62 Year
  Sex: Male

DRUGS (4)
  1. IMBRUVICA [Suspect]
     Active Substance: IBRUTINIB
     Indication: NON-HODGKIN^S LYMPHOMA
     Route: 048
     Dates: start: 20170720
  2. IMBRUVICA [Suspect]
     Active Substance: IBRUTINIB
     Route: 048
     Dates: start: 20170720
  3. IMBRUVICA [Suspect]
     Active Substance: IBRUTINIB
     Dosage: 560 MG, QD
     Route: 048
     Dates: start: 20190517, end: 2019
  4. IMBRUVICA [Suspect]
     Active Substance: IBRUTINIB
     Dosage: 560 MG, QD
     Route: 048
     Dates: start: 20170728

REACTIONS (4)
  - Pneumonia [Unknown]
  - Pulmonary mass [Unknown]
  - Fatigue [Not Recovered/Not Resolved]
  - Cataract [Unknown]

NARRATIVE: CASE EVENT DATE: 201906
